FAERS Safety Report 8719379 (Version 2)
Quarter: 2012Q4

REPORT INFORMATION
  Report Type: 
  Country: US (occurrence: US)
  Receive Date: 20120813
  Receipt Date: 20121024
  Transmission Date: 20130627
  Serious: No
  Sender: FDA-Public Use
  Company Number: US-009507513-1207USA008089

PATIENT
  Sex: Male

DRUGS (1)
  1. AZASITE [Suspect]
     Indication: EYE INFECTION
     Dosage: 2 Gtt, qd
     Route: 047
     Dates: start: 201101

REACTIONS (4)
  - Burning sensation [Recovering/Resolving]
  - Erythema [Recovering/Resolving]
  - Wrong technique in drug usage process [Unknown]
  - Product packaging issue [Unknown]
